FAERS Safety Report 23834910 (Version 6)
Quarter: 2024Q3

REPORT INFORMATION
  Report Type: Report from Study
  Country: GB (occurrence: GB)
  Receive Date: 20240509
  Receipt Date: 20240930
  Transmission Date: 20241017
  Serious: Yes (Other)
  Sender: TAKEDA
  Company Number: GB-TAKEDA-2024TUS036765

PATIENT
  Sex: Female

DRUGS (3)
  1. VEDOLIZUMAB [Suspect]
     Active Substance: VEDOLIZUMAB
     Indication: Colitis ulcerative
     Dosage: UNK
     Route: 065
  2. VEDOLIZUMAB [Suspect]
     Active Substance: VEDOLIZUMAB
     Indication: Colitis ulcerative
     Dosage: 108 MILLIGRAM, Q2WEEKS
     Route: 058
  3. VEDOLIZUMAB [Suspect]
     Active Substance: VEDOLIZUMAB
     Indication: Colitis ulcerative
     Dosage: 108 MILLIGRAM, Q2WEEKS
     Route: 058

REACTIONS (14)
  - Bronchiectasis [Recovered/Resolved]
  - Lower respiratory tract infection [Recovered/Resolved]
  - Abdominal pain upper [Unknown]
  - Frequent bowel movements [Unknown]
  - Inappropriate schedule of product administration [Unknown]
  - Injection site extravasation [Unknown]
  - Product availability issue [Unknown]
  - Intercepted product dispensing error [Unknown]
  - Device defective [Unknown]
  - Extra dose administered [Unknown]
  - Wrong technique in product usage process [Unknown]
  - Injection site erythema [Unknown]
  - Injection site pruritus [Unknown]
  - Injection site swelling [Unknown]
